FAERS Safety Report 18963802 (Version 1)
Quarter: 2021Q1

REPORT INFORMATION
  Report Type: Spontaneous
  Country: FR (occurrence: FR)
  Receive Date: 20210303
  Receipt Date: 20210303
  Transmission Date: 20210420
  Serious: Yes (Death)
  Sender: FDA-Public Use
  Company Number: FR-ORGANON-O2102FRA007865

PATIENT
  Age: 27 Year
  Sex: Male

DRUGS (1)
  1. FINASTERIDE. [Suspect]
     Active Substance: FINASTERIDE
     Indication: ALOPECIA
     Dosage: UNK
     Dates: start: 2010, end: 2012

REACTIONS (7)
  - Amnesia [Unknown]
  - Erectile dysfunction [Unknown]
  - Slow speech [Unknown]
  - Disturbance in attention [Unknown]
  - Loss of libido [Unknown]
  - Fatigue [Unknown]
  - Completed suicide [Fatal]
